FAERS Safety Report 8036897-6 (Version None)
Quarter: 2011Q4

REPORT INFORMATION
  Report Type: 
  Country: None (occurrence: None)
  Receive Date: 20111202
  Receipt Date: 20111017
  Transmission Date: 20120403
  Serious: No
  Sender: FDA-Public Use
  Company Number: PHEH2011US07015

PATIENT
  Age: 21 Year
  Sex: Male
  Weight: 104.3 kg

DRUGS (4)
  1. FANAPT [Suspect]
     Dosage: 6 MG, BID, ORAL
     Route: 048
     Dates: start: 20110903, end: 20111013
  2. PROZAC [Concomitant]
  3. WELLBUTRIN [Concomitant]
  4. CLONOPIN [Concomitant]

REACTIONS (1)
  - DYSKINESIA [None]
